FAERS Safety Report 19482231 (Version 2)
Quarter: 2021Q3

REPORT INFORMATION
  Report Type: Report from Study
  Country: US (occurrence: US)
  Receive Date: 20210701
  Receipt Date: 20210720
  Transmission Date: 20211014
  Serious: Yes (Death, Hospitalization, Other)
  Sender: FDA-Public Use
  Company Number: US-BAYER-2021-154820

PATIENT
  Age: 68 Year
  Sex: Female

DRUGS (2)
  1. NEXAVAR [Suspect]
     Active Substance: SORAFENIB
     Indication: HEPATOCELLULAR CARCINOMA
     Dosage: 200 MG, BID
     Route: 048
     Dates: start: 202106, end: 20210701
  2. NEXAVAR [Suspect]
     Active Substance: SORAFENIB
     Indication: HEPATOCELLULAR CARCINOMA
     Dosage: 400 MG, BID
     Route: 048
     Dates: start: 20210527

REACTIONS (15)
  - Fluid intake reduced [Unknown]
  - Eating disorder [Unknown]
  - Pain [Unknown]
  - Epistaxis [Unknown]
  - Decreased appetite [Unknown]
  - Nausea [Not Recovered/Not Resolved]
  - Dehydration [Unknown]
  - Abdominal pain [Unknown]
  - Haemorrhoidal haemorrhage [None]
  - Bone pain [Unknown]
  - Death [Fatal]
  - Food refusal [Unknown]
  - Chapped lips [Unknown]
  - Lip dry [Unknown]
  - Stomatitis [Unknown]

NARRATIVE: CASE EVENT DATE: 202106
